FAERS Safety Report 13090354 (Version 2)
Quarter: 2017Q2

REPORT INFORMATION
  Report Type: Spontaneous
  Country: US (occurrence: US)
  Receive Date: 20170105
  Receipt Date: 20170425
  Transmission Date: 20170830
  Serious: Yes (Other)
  Sender: FDA-Public Use
  Company Number: US-TEVA-726089USA

PATIENT
  Age: 51 Year
  Sex: Female

DRUGS (12)
  1. ASPIRIN (E.C.) [Concomitant]
     Active Substance: ASPIRIN
  2. COPAXONE [Suspect]
     Active Substance: GLATIRAMER ACETATE
     Indication: MULTIPLE SCLEROSIS
     Dosage: 20 MILLIGRAM DAILY;
     Route: 058
     Dates: start: 20130612
  3. LISINOPRIL. [Concomitant]
     Active Substance: LISINOPRIL
  4. VICTOZA [Concomitant]
     Active Substance: LIRAGLUTIDE
     Dosage: 18MG/3ML
  5. AMANTADINE. [Concomitant]
     Active Substance: AMANTADINE HYDROCHLORIDE
  6. SERTRALINE [Concomitant]
     Active Substance: SERTRALINE HYDROCHLORIDE
  7. ACYCLOVIR. [Concomitant]
     Active Substance: ACYCLOVIR
  8. VITAMIN B COMPLEX [Concomitant]
     Active Substance: CYANOCOBALAMIN\DEXPANTHENOL\NIACINAMIDE\PYRIDOXINE HYDROCHLORIDE\RIBOFLAVIN 5^-PHOSPHATE SODIUM\THIAMINE HYDROCHLORIDE\VITAMIN B COMPLEX
  9. SIMVASTATIN. [Concomitant]
     Active Substance: SIMVASTATIN
  10. GABAPENTIN. [Concomitant]
     Active Substance: GABAPENTIN
  11. FISH OIL [Concomitant]
     Active Substance: FISH OIL
  12. PANTOPRAZOLE [Concomitant]
     Active Substance: PANTOPRAZOLE

REACTIONS (1)
  - Multiple sclerosis relapse [Not Recovered/Not Resolved]

NARRATIVE: CASE EVENT DATE: 201612
